FAERS Safety Report 5363368-8 (Version None)
Quarter: 2007Q2

REPORT INFORMATION
  Report Type: 
  Country: None (occurrence: None)
  Receive Date: 20070620
  Receipt Date: 20070613
  Transmission Date: 20071010
  Serious: Yes (Death)
  Sender: FDA-Public Use
  Company Number: DE-BAYER-200710675BVD

PATIENT

DRUGS (1)
  1. AVELOX [Suspect]
     Indication: UNEVALUABLE EVENT

REACTIONS (2)
  - PSEUDOMEMBRANOUS COLITIS [None]
  - SUDDEN DEATH [None]
